FAERS Safety Report 16384076 (Version 1)
Quarter: 2019Q2

REPORT INFORMATION
  Report Type: Spontaneous
  Country: US (occurrence: US)
  Receive Date: 20190426
  Receipt Date: 20190426
  Transmission Date: 20190711
  Serious: No
  Sender: FDA-Public Use
  Company Number: None

PATIENT
  Age: 78 Year

DRUGS (9)
  1. CARVEDILOL. [Concomitant]
     Active Substance: CARVEDILOL
  2. ERLEADA [Suspect]
     Active Substance: APALUTAMIDE
     Indication: PROSTATE CANCER
     Route: 048
     Dates: start: 20190308
  3. ISOSORBIDE. [Concomitant]
     Active Substance: ISOSORBIDE
  4. XARELTO [Concomitant]
     Active Substance: RIVAROXABAN
  5. LOSARTAN. [Concomitant]
     Active Substance: LOSARTAN
  6. SIMVASTATIN. [Concomitant]
     Active Substance: SIMVASTATIN
  7. FUROSEMIDE. [Concomitant]
     Active Substance: FUROSEMIDE
  8. AMIDARONE [Concomitant]
     Active Substance: AMIODARONE
  9. TAMSULOSIN [Concomitant]
     Active Substance: TAMSULOSIN

REACTIONS (5)
  - Fatigue [None]
  - Arthralgia [None]
  - Red blood cell count increased [None]
  - Platelet count increased [None]
  - Prostatic specific antigen abnormal [None]
